FAERS Safety Report 9011697 (Version 1)
Quarter: 2013Q1

REPORT INFORMATION
  Report Type: Spontaneous
  Country: US (occurrence: US)
  Receive Date: 20130102
  Receipt Date: 20130102
  Transmission Date: 20140127
  Serious: Yes (Other)
  Sender: FDA-Public Use
  Company Number: PHEH2012US025522

PATIENT
  Sex: Female

DRUGS (2)
  1. DIOVAN [Suspect]
  2. NOVOLOG [Concomitant]
     Indication: DIABETES MELLITUS

REACTIONS (3)
  - Tetanus [Unknown]
  - Hearing impaired [Unknown]
  - Drug hypersensitivity [Unknown]
